FAERS Safety Report 13276556 (Version 4)
Quarter: 2017Q2

REPORT INFORMATION
  Report Type: Spontaneous
  Country: US (occurrence: US)
  Receive Date: 20170228
  Receipt Date: 20170620
  Transmission Date: 20170830
  Serious: Yes (Other)
  Sender: FDA-Public Use
  Company Number: US-AUROBINDO-AUR-APU-2017-29926

PATIENT
  Age: 53 Year
  Sex: Female

DRUGS (2)
  1. DIVALPROEX SODIUM EXTENDED-RELEASE [Suspect]
     Active Substance: DIVALPROEX SODIUM
     Indication: TREMOR
  2. DIVALPROEX SODIUM EXTENDED-RELEASE [Suspect]
     Active Substance: DIVALPROEX SODIUM
     Indication: MIGRAINE
     Dosage: UNK
     Route: 065
     Dates: start: 20170118, end: 20170130

REACTIONS (4)
  - Headache [Unknown]
  - Balance disorder [Unknown]
  - Vision blurred [Unknown]
  - Impaired work ability [Unknown]

NARRATIVE: CASE EVENT DATE: 20170126
